FAERS Safety Report 9852335 (Version 1)
Quarter: 2014Q1

REPORT INFORMATION
  Report Type: Spontaneous
  Country: US (occurrence: US)
  Receive Date: 20140129
  Receipt Date: 20140129
  Transmission Date: 20141002
  Serious: No
  Sender: FDA-Public Use
  Company Number: US-UPSHER-SMITH LABORATORIES, INC.-13003879

PATIENT
  Age: 67 Year
  Sex: Male

DRUGS (9)
  1. AMANTADINE HYDROCHLORIDE [Suspect]
     Indication: PARKINSON^S DISEASE
     Dosage: 50 MG, QID
     Route: 048
     Dates: start: 201302, end: 201312
  2. AMANTADINE HYDROCHLORIDE [Suspect]
     Dosage: 50 MG, QD
     Route: 048
     Dates: start: 201312, end: 20131224
  3. CLONIDINE [Concomitant]
     Indication: ANXIETY
     Dosage: UNK
  4. PROTONIX [Concomitant]
     Indication: GASTROOESOPHAGEAL REFLUX DISEASE
     Dosage: UNK
  5. B-COMPLEX [Concomitant]
     Dosage: UNK
  6. FOLIC ACID [Concomitant]
     Dosage: UNK
  7. LYCOPENE [Concomitant]
     Dosage: UNK
  8. LUTEIN [Concomitant]
     Dosage: UNK
  9. CARBIDOPA AND LEVODOPA [Concomitant]
     Indication: PARKINSON^S DISEASE
     Dosage: UNK

REACTIONS (4)
  - Oedema peripheral [Recovering/Resolving]
  - Arthralgia [Not Recovered/Not Resolved]
  - Joint swelling [Not Recovered/Not Resolved]
  - Pain in extremity [Not Recovered/Not Resolved]
